FAERS Safety Report 14326660 (Version 1)
Quarter: 2017Q4

REPORT INFORMATION
  Report Type: Spontaneous
  Country: US (occurrence: US)
  Receive Date: 20171226
  Receipt Date: 20171226
  Transmission Date: 20180321
  Serious: Yes (Death)
  Sender: FDA-Public Use
  Company Number: None

PATIENT
  Age: 53 Year
  Sex: Male

DRUGS (8)
  1. TRAZODONE [Concomitant]
     Active Substance: TRAZODONE HYDROCHLORIDE
  2. TRIMETHOBENZ [Concomitant]
  3. RYTARY [Concomitant]
     Active Substance: CARBIDOPA\LEVODOPA
  4. APOKYN [Concomitant]
     Active Substance: APOMORPHINE HYDROCHLORIDE
  5. LAMOTRIGINE. [Concomitant]
     Active Substance: LAMOTRIGINE
  6. BOTOX [Suspect]
     Active Substance: ONABOTULINUMTOXINA
     Indication: TORTICOLLIS
     Dosage: OTHER FREQUENCY:Q3M;?
     Route: 030
     Dates: start: 20110202
  7. CLONAZEPAM. [Concomitant]
     Active Substance: CLONAZEPAM
  8. GABAPENTIN. [Concomitant]
     Active Substance: GABAPENTIN

REACTIONS (1)
  - Bladder cancer [None]

NARRATIVE: CASE EVENT DATE: 20171206
